FAERS Safety Report 5523850-7 (Version None)
Quarter: 2007Q4

REPORT INFORMATION
  Report Type: 
  Country: None (occurrence: None)
  Receive Date: 20071121
  Receipt Date: 20071116
  Transmission Date: 20080405
  Serious: Yes (Hospitalization, Other)
  Sender: FDA-Public Use
  Company Number: US-SHR-01/07050-USE

PATIENT
  Age: 54 Year
  Sex: Female
  Weight: 56 kg

DRUGS (4)
  1. BETASERON [Suspect]
     Indication: RELAPSING-REMITTING MULTIPLE SCLEROSIS
     Dosage: 8 MIU, EVERY 2D
     Route: 058
     Dates: start: 19950101
  2. BACLOFEN [Concomitant]
     Dates: start: 20010101
  3. TRAZODONE HCL [Concomitant]
     Dates: start: 19980101
  4. PROZAC [Concomitant]
     Indication: FAMILY STRESS
     Dates: start: 19980101

REACTIONS (8)
  - BREAST CANCER FEMALE [None]
  - BREAST RECONSTRUCTION [None]
  - DEPRESSION [None]
  - HYPOTENSION [None]
  - INJECTION SITE NECROSIS [None]
  - PHARMACEUTICAL PRODUCT COMPLAINT [None]
  - POST PROCEDURAL INFECTION [None]
  - PYREXIA [None]
